FAERS Safety Report 11697882 (Version 1)
Quarter: 2015Q4

REPORT INFORMATION
  Report Type: Spontaneous
  Country: GB (occurrence: GB)
  Receive Date: 20151104
  Receipt Date: 20151104
  Transmission Date: 20160304
  Serious: Yes (Other)
  Sender: FDA-Public Use
  Company Number: GB-GLAXOSMITHKLINE-GB2015156599

PATIENT
  Age: 52 Year
  Sex: Female
  Weight: 90 kg

DRUGS (7)
  1. RANITIDINE [Suspect]
     Active Substance: RANITIDINE\RANITIDINE HYDROCHLORIDE
     Dates: start: 20151012
  2. BUDESONIDE. [Concomitant]
     Active Substance: BUDESONIDE
     Route: 055
     Dates: start: 20140106
  3. MOMETASONE [Concomitant]
     Active Substance: MOMETASONE
     Dosage: BOTH NOSTRILS
     Route: 045
     Dates: start: 20151021
  4. LANSOPRAZOLE. [Concomitant]
     Active Substance: LANSOPRAZOLE
     Dosage: FOR 6-8 WEEKS
     Dates: start: 20150804
  5. MONTELUKAST [Concomitant]
     Active Substance: MONTELUKAST SODIUM
     Dosage: AT NIGHT
     Dates: start: 20140227
  6. CO-DYDRAMOL [Concomitant]
     Active Substance: ACETAMINOPHEN\DIHYDROCODEINE
     Dates: start: 20051003
  7. TERBUTALINE [Concomitant]
     Active Substance: TERBUTALINE
     Dosage: 1 PUFF FOUR TIMES DAILY AS REQUIRED
     Route: 055
     Dates: start: 20140106

REACTIONS (4)
  - Erythema nodosum [Recovering/Resolving]
  - Rash macular [Recovering/Resolving]
  - Pallor [Recovering/Resolving]
  - Hypersensitivity [Recovering/Resolving]

NARRATIVE: CASE EVENT DATE: 20151021
